FAERS Safety Report 10379852 (Version 1)
Quarter: 2014Q1

REPORT INFORMATION
  Report Type: Spontaneous
  Country: US (occurrence: None)
  Receive Date: 20140306
  Receipt Date: 20140306
  Transmission Date: 20141002
  Serious: Yes (Hospitalization)
  Sender: FDA-Public Use
  Company Number: 163-21880-13033224

PATIENT
  Age: 86 Year
  Sex: Female

DRUGS (3)
  1. REVLIMID (LENALIDOMIDE) (CAPSULES) [Suspect]
     Indication: MYELODYSPLASTIC SYNDROME
     Dosage: 28 IN 28 D
     Route: 048
     Dates: start: 20130108
  2. PREDNISONE [Suspect]
     Indication: RHEUMATOID ARTHRITIS
  3. PREDNISONE [Suspect]
     Indication: POLYMYALGIA RHEUMATICA

REACTIONS (3)
  - Influenza [None]
  - Hypertension [None]
  - Dysphonia [None]
